FAERS Safety Report 13528142 (Version 1)
Quarter: 2017Q2

REPORT INFORMATION
  Report Type: Not Available
  Country: US (occurrence: US)
  Receive Date: 20170509
  Receipt Date: 20170509
  Transmission Date: 20170830
  Serious: Yes (Other)
  Sender: FDA-Public Use
  Company Number: US-ANIPHARMA-2017-US-004697

PATIENT
  Age: 63 Year
  Sex: Male

DRUGS (3)
  1. IBUPROFEN (NON-SPECIFIC) [Suspect]
     Active Substance: IBUPROFEN
     Route: 065
  2. CYCLOBENZAPRINE. [Suspect]
     Active Substance: CYCLOBENZAPRINE
     Route: 065
  3. MELOXICAM. [Suspect]
     Active Substance: MELOXICAM
     Route: 065

REACTIONS (4)
  - Atrial fibrillation [Recovered/Resolved]
  - Overdose [Recovered/Resolved]
  - Ileus [Recovered/Resolved]
  - Electrocardiogram ST segment elevation [Recovered/Resolved]
